FAERS Safety Report 8530980-4 (Version None)
Quarter: 2012Q3

REPORT INFORMATION
  Report Type: 
  Country: None (occurrence: None)
  Receive Date: 20120723
  Receipt Date: 20120720
  Transmission Date: 20120928
  Serious: Yes (Death)
  Sender: FDA-Public Use
  Company Number: GB-ROCHE-1090290

PATIENT
  Sex: Male
  Weight: 180 kg

DRUGS (2)
  1. MABTHERA [Suspect]
     Indication: RHEUMATOID ARTHRITIS
     Dosage: LAST DOSE PRIOR TO SAE: 17/NOV/2011
     Route: 065
     Dates: start: 20100416
  2. SALAZOPRIN [Concomitant]

REACTIONS (1)
  - DEATH [None]
